FAERS Safety Report 9844389 (Version 2)
Quarter: 2014Q1

REPORT INFORMATION
  Report Type: Spontaneous
  Country: NO (occurrence: NO)
  Receive Date: 20140127
  Receipt Date: 20140130
  Transmission Date: 20141002
  Serious: Yes (Life-Threatening, Hospitalization, Disabling, Other)
  Sender: FDA-Public Use
  Company Number: PHHY2014NO007201

PATIENT
  Age: 49 Year
  Sex: Male

DRUGS (4)
  1. CLOZAPINE [Suspect]
     Indication: SCHIZOAFFECTIVE DISORDER
     Dosage: 600 MG, DAILY
     Route: 048
     Dates: start: 2001
  2. LITHIUM [Concomitant]
     Indication: SCHIZOAFFECTIVE DISORDER
     Dosage: 249 MG, DAILY
     Route: 048
     Dates: start: 1990
  3. CLONAZEPAM [Concomitant]
     Indication: AGITATION
     Dosage: 1 MG, DAILY
     Route: 048
  4. CITALOPRAM [Concomitant]
     Indication: DEPRESSION
     Dosage: 20 MG, DAILY

REACTIONS (6)
  - Post procedural complication [Recovering/Resolving]
  - Colonic pseudo-obstruction [Not Recovered/Not Resolved]
  - Intestinal dilatation [Unknown]
  - Constipation [Unknown]
  - Fascial rupture [Unknown]
  - Body fat disorder [Unknown]
